FAERS Safety Report 8301040-2 (Version None)
Quarter: 2012Q2

REPORT INFORMATION
  Report Type: 
  Country: None (occurrence: None)
  Receive Date: 20120420
  Receipt Date: 20120410
  Transmission Date: 20120825
  Serious: Yes (Hospitalization, Other)
  Sender: FDA-Public Use
  Company Number: JP-ELI_LILLY_AND_COMPANY-JP201110003328

PATIENT
  Age: 55 Year
  Sex: Female

DRUGS (1)
  1. FORTEO [Suspect]
     Dosage: UNK
     Route: 058

REACTIONS (5)
  - HIP ARTHROPLASTY [None]
  - LIMB OPERATION [None]
  - ASTHENIA [None]
  - DIZZINESS [None]
  - ARTHRITIS [None]
